FAERS Safety Report 7960244-9 (Version None)
Quarter: 2011Q4

REPORT INFORMATION
  Report Type: 
  Country: None (occurrence: None)
  Receive Date: 20111201
  Receipt Date: 20111122
  Transmission Date: 20120403
  Serious: Yes (Hospitalization, Other)
  Sender: FDA-Public Use
  Company Number: TPA2011A07834

PATIENT
  Age: 61 Year
  Sex: Male
  Weight: 121.564 kg

DRUGS (1)
  1. ACTOPLUS MET [Suspect]
     Indication: TYPE 2 DIABETES MELLITUS
     Dosage: BID, 15 MG/850 MG, PER ORAL
     Route: 048
     Dates: start: 20090601

REACTIONS (1)
  - BLADDER TRANSITIONAL CELL CARCINOMA STAGE II [None]
